FAERS Safety Report 8384381 (Version 3)
Quarter: 2013Q3

REPORT INFORMATION
  Report Type: Spontaneous
  Country: US (occurrence: US)
  Receive Date: 20120202
  Receipt Date: 20130927
  Transmission Date: 20140515
  Serious: Yes (Hospitalization, Other)
  Sender: FDA-Public Use
  Company Number: US-JNJFOC-20111008339

PATIENT
  Age: 67 Year
  Sex: Female

DRUGS (3)
  1. LEVAQUIN [Suspect]
     Indication: CELLULITIS
     Route: 048
     Dates: start: 201007
  2. LEVAQUIN [Suspect]
     Indication: SINUSITIS
     Route: 048
     Dates: start: 201007
  3. VANCOMYCIN [Suspect]
     Indication: CELLULITIS
     Route: 042
     Dates: start: 201007

REACTIONS (5)
  - Toxic epidermal necrolysis [Recovering/Resolving]
  - Stevens-Johnson syndrome [Recovering/Resolving]
  - Depression [Unknown]
  - Dry eye [Not Recovered/Not Resolved]
  - Mood swings [Unknown]
